FAERS Safety Report 6050246-4 (Version None)
Quarter: 2009Q1

REPORT INFORMATION
  Report Type: 
  Country: None (occurrence: None)
  Receive Date: 20090116
  Receipt Date: 20090105
  Transmission Date: 20090719
  Serious: Yes (Hospitalization)
  Sender: FDA-Public Use
  Company Number: KV200801368

PATIENT
  Age: 90 Year
  Sex: Female

DRUGS (8)
  1. ISOSORBIDE MONONITRATE [Suspect]
     Indication: DRUG USE FOR UNKNOWN INDICATION
     Dosage: 30 MG, QD, ORAL
     Route: 048
  2. FUROSEMIDE (FUROSEMIDE) [Concomitant]
  3. KLOR-CON [Concomitant]
  4. METOPROLOL TARTRATE [Concomitant]
  5. CARDIZEM [Concomitant]
  6. CILOSTAZOL [Concomitant]
  7. ASPIRIN [Concomitant]
  8. LAXATIVES [Concomitant]

REACTIONS (5)
  - ABDOMINAL PAIN [None]
  - CEREBROVASCULAR ACCIDENT [None]
  - PANCREATIC CYST [None]
  - PRODUCT QUALITY ISSUE [None]
  - TACHYCARDIA [None]
